FAERS Safety Report 22135231 (Version 1)
Quarter: 2023Q1

REPORT INFORMATION
  Report Type: Spontaneous
  Country: US (occurrence: US)
  Receive Date: 20230324
  Receipt Date: 20230324
  Transmission Date: 20230418
  Serious: Yes (Life-Threatening, Hospitalization, Other)
  Sender: FDA-Public Use
  Company Number: US-TORRENT-00012570

PATIENT
  Age: 52 Year
  Sex: Male

DRUGS (1)
  1. ITRACONAZOLE [Suspect]
     Active Substance: ITRACONAZOLE
     Indication: Histoplasmosis
     Dosage: UNKNOWN
     Route: 065

REACTIONS (2)
  - Cardiac failure congestive [Recovering/Resolving]
  - Acute left ventricular failure [Recovering/Resolving]
